FAERS Safety Report 9253651 (Version 2)
Quarter: 2014Q1

REPORT INFORMATION
  Report Type: Spontaneous
  Country: US (occurrence: US)
  Receive Date: 20130425
  Receipt Date: 20140107
  Transmission Date: 20141002
  Serious: Yes (Hospitalization, Disabling, Other)
  Sender: FDA-Public Use
  Company Number: US-ASTRAZENECA-2013SE27609

PATIENT
  Age: 781 Month
  Sex: Male
  Weight: 108.9 kg

DRUGS (23)
  1. NEXIUM [Suspect]
     Indication: GASTROOESOPHAGEAL REFLUX DISEASE
     Route: 048
     Dates: start: 1995, end: 2011
  2. NEXIUM [Suspect]
     Indication: ULCER
     Route: 048
     Dates: start: 1995, end: 2011
  3. NEXIUM [Suspect]
     Indication: GASTROOESOPHAGEAL REFLUX DISEASE
     Route: 048
     Dates: start: 20040401
  4. NEXIUM [Suspect]
     Indication: ULCER
     Route: 048
     Dates: start: 20040401
  5. LANSOPRAZOLE [Concomitant]
     Indication: GASTROOESOPHAGEAL REFLUX DISEASE
     Dates: start: 2011
  6. PEPTO-BISMOL [Concomitant]
     Dates: start: 1955
  7. METOPROLOL [Concomitant]
     Indication: BLOOD PRESSURE
  8. CELEBREX [Concomitant]
     Indication: ARTHRITIS
  9. ASPIRIN [Concomitant]
     Indication: CARDIAC DISORDER
  10. SIMVASTATIN [Concomitant]
     Indication: BLOOD CHOLESTEROL
  11. SPIRIVA [Concomitant]
     Indication: LUNG DISORDER
  12. MULTIVITAMIN [Concomitant]
  13. CALCIUM [Concomitant]
  14. GLUCOMASON [Concomitant]
     Indication: ARTHRITIS
  15. MECLIZINE HCL [Concomitant]
     Dates: start: 20080923
  16. LOSARTAN POTASSIUM [Concomitant]
     Dates: start: 20111210
  17. FOSAMAX [Concomitant]
  18. PROZAC [Concomitant]
     Dates: start: 20040401
  19. SINGULAIR [Concomitant]
     Dates: start: 20040401
  20. ATIVAN [Concomitant]
     Dates: start: 20040401
  21. KLONOPIN [Concomitant]
     Dates: start: 20040401
  22. FORTEO [Concomitant]
     Dates: start: 20040401
  23. LEVSIN [Concomitant]
     Indication: GASTROOESOPHAGEAL REFLUX DISEASE
     Dates: start: 20040401

REACTIONS (18)
  - Road traffic accident [Unknown]
  - Facial bones fracture [Unknown]
  - Lower limb fracture [Unknown]
  - Dehydration [Unknown]
  - Functional gastrointestinal disorder [Unknown]
  - Intervertebral disc disorder [Unknown]
  - Arthropathy [Unknown]
  - Femur fracture [Unknown]
  - Spinal compression fracture [Unknown]
  - Osteoporosis [Unknown]
  - Bone disorder [Unknown]
  - Multiple fractures [Unknown]
  - Cataract [Unknown]
  - Chronic obstructive pulmonary disease [Unknown]
  - Back pain [Unknown]
  - Osteopenia [Unknown]
  - Tibia fracture [Unknown]
  - Intervertebral disc degeneration [Unknown]
